FAERS Safety Report 25503550 (Version 1)
Quarter: 2025Q3

REPORT INFORMATION
  Report Type: Spontaneous
  Country: EU (occurrence: EU)
  Receive Date: 20250702
  Receipt Date: 20250702
  Transmission Date: 20251020
  Serious: Yes (Hospitalization)
  Sender: MYLAN
  Company Number: EU-MYLANLABS-2025M1054999

PATIENT
  Sex: Female
  Weight: 1.16 kg

DRUGS (16)
  1. DOXORUBICIN [Suspect]
     Active Substance: DOXORUBICIN
     Indication: Sarcoma
     Dosage: 50 MILLIGRAM/SQ. METER, Q3W (ON DAY 1)
  2. DOXORUBICIN [Suspect]
     Active Substance: DOXORUBICIN
     Dosage: 50 MILLIGRAM/SQ. METER, Q3W (ON DAY 1)
  3. DOXORUBICIN [Suspect]
     Active Substance: DOXORUBICIN
     Dosage: 50 MILLIGRAM/SQ. METER, Q3W (ON DAY 1)
     Route: 064
  4. DOXORUBICIN [Suspect]
     Active Substance: DOXORUBICIN
     Dosage: 50 MILLIGRAM/SQ. METER, Q3W (ON DAY 1)
     Route: 064
  5. DOXORUBICIN [Suspect]
     Active Substance: DOXORUBICIN
     Dosage: 50 MILLIGRAM/SQ. METER, Q3W (ON DAY 1)
  6. DOXORUBICIN [Suspect]
     Active Substance: DOXORUBICIN
     Dosage: 50 MILLIGRAM/SQ. METER, Q3W (ON DAY 1)
  7. DOXORUBICIN [Suspect]
     Active Substance: DOXORUBICIN
     Dosage: 50 MILLIGRAM/SQ. METER, Q3W (ON DAY 1)
     Route: 064
  8. DOXORUBICIN [Suspect]
     Active Substance: DOXORUBICIN
     Dosage: 50 MILLIGRAM/SQ. METER, Q3W (ON DAY 1)
     Route: 064
  9. IFOSFAMIDE [Suspect]
     Active Substance: IFOSFAMIDE
     Indication: Sarcoma
     Dosage: 2.5 GRAM PER SQUARE METRE, Q3W (2.5 G/M2 ON DAY 1 AND DAY 2)
  10. IFOSFAMIDE [Suspect]
     Active Substance: IFOSFAMIDE
     Dosage: 2.5 GRAM PER SQUARE METRE, Q3W (2.5 G/M2 ON DAY 1 AND DAY 2)
  11. IFOSFAMIDE [Suspect]
     Active Substance: IFOSFAMIDE
     Dosage: 2.5 GRAM PER SQUARE METRE, Q3W (2.5 G/M2 ON DAY 1 AND DAY 2)
     Route: 064
  12. IFOSFAMIDE [Suspect]
     Active Substance: IFOSFAMIDE
     Dosage: 2.5 GRAM PER SQUARE METRE, Q3W (2.5 G/M2 ON DAY 1 AND DAY 2)
     Route: 064
  13. IFOSFAMIDE [Suspect]
     Active Substance: IFOSFAMIDE
     Dosage: 2.5 GRAM PER SQUARE METRE, Q3W (2.5 G/M2 ON DAY 1 AND DAY 2)
  14. IFOSFAMIDE [Suspect]
     Active Substance: IFOSFAMIDE
     Dosage: 2.5 GRAM PER SQUARE METRE, Q3W (2.5 G/M2 ON DAY 1 AND DAY 2)
  15. IFOSFAMIDE [Suspect]
     Active Substance: IFOSFAMIDE
     Dosage: 2.5 GRAM PER SQUARE METRE, Q3W (2.5 G/M2 ON DAY 1 AND DAY 2)
     Route: 064
  16. IFOSFAMIDE [Suspect]
     Active Substance: IFOSFAMIDE
     Dosage: 2.5 GRAM PER SQUARE METRE, Q3W (2.5 G/M2 ON DAY 1 AND DAY 2)
     Route: 064

REACTIONS (4)
  - Premature baby [Unknown]
  - Foetal growth restriction [Recovering/Resolving]
  - Foetal arrhythmia [Recovering/Resolving]
  - Foetal exposure during pregnancy [Recovered/Resolved]
